FAERS Safety Report 9467566 (Version 2)
Quarter: 2013Q3

REPORT INFORMATION
  Report Type: Spontaneous
  Country: US (occurrence: US)
  Receive Date: 20130821
  Receipt Date: 20130821
  Transmission Date: 20140515
  Serious: Yes (Disabling, Other)
  Sender: FDA-Public Use
  Company Number: US-GENZYME-POMP-1002969

PATIENT
  Age: 51 Year
  Sex: Male
  Weight: 81 kg

DRUGS (7)
  1. LUMIZYME [Suspect]
     Indication: GLYCOGEN STORAGE DISEASE TYPE II
     Dosage: 19.75 MG/KG, Q2W
     Route: 042
     Dates: start: 20091028, end: 201303
  2. HYDROCORTISONE [Concomitant]
     Indication: PREMEDICATION
     Dosage: 10 MG, UNK
     Route: 042
  3. LORAZEPAM [Concomitant]
     Indication: ANXIETY
     Dosage: 0.5 MG, BID
     Route: 065
  4. LUVOX [Concomitant]
     Indication: DEPRESSION
     Dosage: 150 MG, QD
     Route: 065
  5. AMBIEN [Concomitant]
     Indication: PRODUCT USED FOR UNKNOWN INDICATION
     Dosage: 5 MG, PRN
     Route: 065
  6. CRAS X [Concomitant]
     Indication: CONSTIPATION
     Dosage: UNK
     Route: 065
  7. MILK OF MAGNESIA [Concomitant]
     Indication: CONSTIPATION
     Dosage: UNK
     Route: 065

REACTIONS (3)
  - Drug ineffective [Not Recovered/Not Resolved]
  - Fatigue [Recovered/Resolved]
  - Urticaria [Unknown]
